FAERS Safety Report 7504576-7 (Version None)
Quarter: 2011Q2

REPORT INFORMATION
  Report Type: 
  Country: None (occurrence: None)
  Receive Date: 20110525
  Receipt Date: 20110520
  Transmission Date: 20111010
  Serious: Yes (Other)
  Sender: FDA-Public Use
  Company Number: FR-SANOFI-AVENTIS-2011SA031758

PATIENT
  Age: 51 Year
  Sex: Female

DRUGS (9)
  1. MEDROXYPROGESTERONE ACETATE [Suspect]
     Dosage: DOSE:1 UNIT(S)
     Route: 030
     Dates: start: 20091229
  2. AMLODIPINE [Suspect]
     Route: 048
     Dates: start: 20100101
  3. VICTOZA [Suspect]
     Indication: TYPE 2 DIABETES MELLITUS
     Route: 058
     Dates: start: 20100701
  4. GLICLAZIDE [Suspect]
     Indication: TYPE 2 DIABETES MELLITUS
     Route: 048
     Dates: start: 20100701
  5. METFORMIN HCL [Suspect]
     Indication: TYPE 2 DIABETES MELLITUS
     Route: 048
     Dates: start: 20100701
  6. ALLOPURINOL [Suspect]
     Indication: HYPERURICAEMIA
     Route: 048
     Dates: start: 20100101
  7. KERLONE [Suspect]
     Route: 048
     Dates: start: 20100101
  8. FUROSEMIDE [Suspect]
     Route: 048
  9. ACTEMRA [Suspect]
     Indication: RHEUMATOID ARTHRITIS
     Route: 042
     Dates: start: 20100924, end: 20110301

REACTIONS (1)
  - OEDEMA [None]
